FAERS Safety Report 10570041 (Version 1)
Quarter: 2014Q4

REPORT INFORMATION
  Report Type: Spontaneous
  Country: US (occurrence: None)
  Receive Date: 20141106
  Receipt Date: 20141106
  Transmission Date: 20150529
  Serious: No
  Sender: FDA-Public Use
  Company Number: None

PATIENT
  Age: 45 Year
  Weight: 68.04 kg

DRUGS (1)
  1. MIRVASO [Suspect]
     Active Substance: BRIMONIDINE TARTRATE
     Indication: ROSACEA
     Dosage: ONCE DAILY, APPLIED TO A SURFACE, USUALLY THE SKIN
     Dates: start: 20141028, end: 20141102

REACTIONS (5)
  - Erythema [None]
  - Rosacea [None]
  - Thermal burn [None]
  - Pain [None]
  - Flushing [None]

NARRATIVE: CASE EVENT DATE: 20141031
